FAERS Safety Report 7579676-6 (Version None)
Quarter: 2011Q2

REPORT INFORMATION
  Report Type: 
  Country: None (occurrence: None)
  Receive Date: 20110629
  Receipt Date: 20110628
  Transmission Date: 20111010
  Serious: Yes (Hospitalization)
  Sender: FDA-Public Use
  Company Number: JP-AMGEN-JPNCT2011028587

PATIENT
  Age: 82 Year
  Sex: Female
  Weight: 39 kg

DRUGS (5)
  1. MAINTOWA [Concomitant]
     Indication: ARRHYTHMIA
     Dosage: 5 MG, QD
     Route: 048
  2. MAGMITT [Concomitant]
     Indication: CONSTIPATION
     Dosage: AS NEEDED
     Route: 048
  3. CALCICHEW D3 [Concomitant]
     Indication: OSTEOPOROSIS
     Dosage: 2 DF, QD
     Route: 048
  4. DENOSUMAB [Suspect]
     Indication: OSTEOPOROSIS
     Dosage: 60 MG, Q6MO
     Route: 058
     Dates: start: 20110112, end: 20110112
  5. LANSOPRAZOLE [Concomitant]
     Indication: REFLUX OESOPHAGITIS
     Dosage: 30 MG, QD
     Route: 048

REACTIONS (1)
  - CHOLECYSTITIS ACUTE [None]
